FAERS Safety Report 18032395 (Version 1)
Quarter: 2020Q3

REPORT INFORMATION
  Report Type: Spontaneous
  Country: AT (occurrence: AT)
  Receive Date: 20200716
  Receipt Date: 20200716
  Transmission Date: 20201103
  Serious: Yes (Life-Threatening, Hospitalization, Other)
  Sender: FDA-Public Use
  Company Number: AT-PFIZER INC-2020269583

PATIENT
  Age: 55 Year
  Sex: Female
  Weight: 160 kg

DRUGS (5)
  1. DOMINAL [ACETYLSALICYLIC ACID] [Concomitant]
     Active Substance: ASPIRIN
     Dosage: 80 MG
  2. RISPERDAL [Concomitant]
     Active Substance: RISPERIDONE
     Dosage: 2 MG
  3. TRITTICO [Concomitant]
     Active Substance: TRAZODONE HYDROCHLORIDE
     Dosage: 0?0?1
  4. CANDEBLO PLUS [Suspect]
     Active Substance: CANDESARTAN CILEXETIL\HYDROCHLOROTHIAZIDE
     Indication: HYPERTENSION
     Dosage: 1?0?0
     Route: 048
  5. SERTRALINE HCL [Suspect]
     Active Substance: SERTRALINE HYDROCHLORIDE
     Dosage: 50 MG, (1?0?0), PERMANENT THERAPY

REACTIONS (1)
  - Somnolence [Not Recovered/Not Resolved]
